FAERS Safety Report 7217153-2 (Version None)
Quarter: 2011Q1

REPORT INFORMATION
  Report Type: 
  Country: None (occurrence: None)
  Receive Date: 20110110
  Receipt Date: 20101229
  Transmission Date: 20110831
  Serious: Yes (Other)
  Sender: FDA-Public Use
  Company Number: BR-PFIZER INC-2010181618

PATIENT
  Age: 54 Year
  Sex: Female
  Weight: 82 kg

DRUGS (9)
  1. CIPROFLOXACIN HYDROCHLORIDE [Concomitant]
     Dosage: UNK
  2. AMLODIPINE BESILATE [Concomitant]
     Indication: HYPERTENSION
     Dosage: UNK
  3. MAREVAN ^BRITISH DRUG HOUSES^ [Concomitant]
     Dosage: UNK
  4. AAS [Concomitant]
     Dosage: UNK
  5. NEURONTIN [Suspect]
     Dosage: UNK
     Route: 048
  6. TEGRETOL [Concomitant]
     Dosage: UNK
  7. LYRICA [Suspect]
     Indication: THROMBOSIS
     Dosage: UNK
     Route: 048
     Dates: start: 20060101
  8. LYRICA [Suspect]
     Indication: COAGULOPATHY
  9. ATENOLOL [Concomitant]
     Indication: HYPERTENSION
     Dosage: UNK

REACTIONS (6)
  - HYPERHIDROSIS [None]
  - ARRHYTHMIA [None]
  - HEART RATE INCREASED [None]
  - CARDIAC FAILURE [None]
  - HYPERTENSION [None]
  - NAUSEA [None]
